FAERS Safety Report 5963617-9 (Version None)
Quarter: 2008Q4

REPORT INFORMATION
  Report Type: 
  Country: None (occurrence: None)
  Receive Date: 20081124
  Receipt Date: 20081112
  Transmission Date: 20090506
  Serious: Yes (Death)
  Sender: FDA-Public Use
  Company Number: SE-ROCHE-597384

PATIENT
  Age: 63 Year
  Sex: Male

DRUGS (5)
  1. INTERFERON ALFA [Suspect]
     Indication: EOSINOPHIL COUNT INCREASED
     Route: 065
  2. LEUSTATIN [Suspect]
     Indication: HAIRY CELL LEUKAEMIA
     Dosage: REPORTED AS 'KLADRIBIN'
     Route: 065
     Dates: start: 20030501
  3. LEUSTATIN [Suspect]
     Dosage: START DATE WAS REPORTED AS 'FEB 2008'.
     Route: 065
  4. HYDREA [Suspect]
     Indication: HAIRY CELL LEUKAEMIA
     Route: 065
  5. STEROID NOS [Concomitant]

REACTIONS (4)
  - BRONCHOPULMONARY ASPERGILLOSIS [None]
  - DISEASE PROGRESSION [None]
  - ILL-DEFINED DISORDER [None]
  - LEUKAEMIA [None]
